FAERS Safety Report 5129110-0 (Version None)
Quarter: 2006Q4

REPORT INFORMATION
  Report Type: 
  Country: None (occurrence: None)
  Receive Date: 20061011
  Receipt Date: 20060922
  Transmission Date: 20070319
  Serious: Yes (Other)
  Sender: FDA-Public Use
  Company Number: SK200608004681

PATIENT
  Age: 66 Year
  Sex: Female

DRUGS (3)
  1. FORTEO [Suspect]
     Indication: OSTEOPOROSIS
     Dates: start: 20051012
  2. FORTEO [Suspect]
     Indication: OSTEOPOROSIS
     Dates: start: 20060901
  3. FORTEO [Concomitant]

REACTIONS (4)
  - HIATUS HERNIA [None]
  - HYSTERECTOMY [None]
  - POST PROCEDURAL COMPLICATION [None]
  - URINARY TRACT INFECTION [None]
